FAERS Safety Report 6299247-1 (Version None)
Quarter: 2009Q3

REPORT INFORMATION
  Report Type: 
  Country: None (occurrence: None)
  Receive Date: 20090804
  Receipt Date: 20090721
  Transmission Date: 20100115
  Serious: Yes (Life-Threatening, Hospitalization, Other)
  Sender: FDA-Public Use
  Company Number: 2009-02801

PATIENT
  Age: 57 Year
  Sex: Female

DRUGS (5)
  1. VELCADE [Suspect]
     Indication: MULTIPLE MYELOMA
     Dosage: 1.3 MG, INTRAVENOUS
     Route: 042
     Dates: start: 20090701, end: 20090702
  2. DOXORUBICIN HCL [Concomitant]
  3. INSULIN (INSULIN) [Concomitant]
  4. ALLOPURINOL [Concomitant]
  5. POTASSIUM (POTASSIUM) [Concomitant]

REACTIONS (7)
  - AUTONOMIC NERVOUS SYSTEM IMBALANCE [None]
  - CARDIAC FAILURE [None]
  - DIARRHOEA [None]
  - FLUID IMBALANCE [None]
  - HYPOTENSION [None]
  - MYELOMA RECURRENCE [None]
  - PYREXIA [None]
